FAERS Safety Report 7457970-7 (Version None)
Quarter: 2011Q2

REPORT INFORMATION
  Report Type: 
  Country: None (occurrence: None)
  Receive Date: 20110504
  Receipt Date: 20110425
  Transmission Date: 20111010
  Serious: Yes (Hospitalization, Disabling)
  Sender: FDA-Public Use
  Company Number: BR-ASTRAZENECA-2011SE24380

PATIENT
  Age: 77 Year
  Sex: Female
  Weight: 67 kg

DRUGS (11)
  1. ALDACTONE [Concomitant]
     Indication: MICTURITION DISORDER
     Route: 048
  2. BEROTEC [Concomitant]
     Dosage: UNKNOWN DOSE TWICE A DAY
     Route: 055
  3. CRESTOR [Suspect]
     Route: 048
  4. ATROVENT [Concomitant]
     Dosage: UNKNOWN DOSE TWICE A DAY
     Route: 055
  5. DIMETICONE [Concomitant]
     Route: 048
  6. MAREVAN [Concomitant]
     Indication: COAGULOPATHY
     Route: 048
  7. DIGOXIN [Concomitant]
     Indication: CARDIAC DISORDER
     Route: 048
  8. CRESTOR [Suspect]
     Route: 048
  9. ANCORON [Concomitant]
     Indication: CARDIAC DISORDER
     Route: 048
  10. FEXOFENADINE [Concomitant]
     Indication: HYPERSENSITIVITY
     Route: 048
  11. CRESTOR [Suspect]
     Indication: HYPERCHOLESTEROLAEMIA
     Route: 048

REACTIONS (3)
  - EMBOLIC STROKE [None]
  - SEPSIS [None]
  - DIVERTICULAR PERFORATION [None]
